FAERS Safety Report 4485015-X (Version None)
Quarter: 2004Q4

REPORT INFORMATION
  Report Type: 
  Country: None (occurrence: None)
  Receive Date: 20041026
  Receipt Date: 20041013
  Transmission Date: 20050328
  Serious: Yes (Hospitalization, Other)
  Sender: FDA-Public Use
  Company Number: JP-JNJFOC-20040807858

PATIENT
  Sex: Female
  Weight: 41 kg

DRUGS (7)
  1. REMICADE [Suspect]
     Indication: RHEUMATOID ARTHRITIS
     Route: 042
  2. RHEUMATREX [Concomitant]
  3. RHEUMATREX [Concomitant]
  4. RHEUMATREX [Concomitant]
     Indication: RHEUMATOID ARTHRITIS
  5. MEDROL [Concomitant]
     Dosage: 1.5T
  6. LOXONINE [Concomitant]
     Dosage: 3T
  7. LEUCOVORIN [Concomitant]
     Dosage: 1T

REACTIONS (9)
  - BLOOD BETA-D-GLUCAN INCREASED [None]
  - BLOOD SODIUM DECREASED [None]
  - EMPHYSEMA [None]
  - FATIGUE [None]
  - INTERSTITIAL LUNG DISEASE [None]
  - PNEUMOCYSTIS CARINII PNEUMONIA [None]
  - PNEUMONIA FUNGAL [None]
  - RENAL CELL CARCINOMA STAGE UNSPECIFIED [None]
  - URINARY TRACT INFECTION [None]
